FAERS Safety Report 8865365 (Version 1)
Quarter: 2012Q4

REPORT INFORMATION
  Report Type: 
  Country: US (occurrence: US)
  Receive Date: 20121024
  Receipt Date: 20121024
  Transmission Date: 20130627
  Serious: No
  Sender: FDA-Public Use
  Company Number: US-AMGEN-USASP2012002555

PATIENT
  Age: 53 Year
  Sex: Female

DRUGS (9)
  1. ENBREL [Suspect]
     Indication: PRODUCT USED FOR UNKNOWN INDICATION
     Dosage: 50 mg, qwk
     Route: 058
  2. EVISTA [Concomitant]
     Dosage: 60 mg, UNK
  3. FLEXERIL                           /00428402/ [Concomitant]
     Dosage: 10 mg, UNK
  4. FOLIC ACID [Concomitant]
     Dosage: 1 mg, UNK
  5. IBUPROFEN                          /00109205/ [Concomitant]
     Dosage: 200 mg, UNK
  6. METHOTREXATE [Concomitant]
     Dosage: 250 UNK, UNK
  7. FISH OIL [Concomitant]
     Dosage: UNK unit, UNK
  8. CALCIUM + VITAMIN D + VITAMIN K [Concomitant]
     Dosage: 750 mg, UNK
  9. MULTIPLE VITAMIN [Concomitant]
     Dosage: UNK

REACTIONS (1)
  - Pharyngitis streptococcal [Unknown]
